FAERS Safety Report 4483785-8 (Version None)
Quarter: 2004Q4

REPORT INFORMATION
  Report Type: 
  Country: None (occurrence: None)
  Receive Date: 20041021
  Receipt Date: 20041010
  Transmission Date: 20050328
  Serious: Yes (Hospitalization, Other)
  Sender: FDA-Public Use
  Company Number: 2004-10-0649

PATIENT
  Age: 21 Year
  Sex: Male
  Weight: 74.8435 kg

DRUGS (4)
  1. CLARITIN-D 24 HOUR [Suspect]
     Indication: HYPERSENSITIVITY
     Dosage: ORAL
     Route: 048
     Dates: start: 20041009, end: 20041009
  2. PREDNISONE [Concomitant]
  3. ZYRTEC [Concomitant]
  4. AMOXICILLIN [Concomitant]

REACTIONS (9)
  - BRADYCARDIA [None]
  - CHEST PAIN [None]
  - DIZZINESS [None]
  - DYSPNOEA [None]
  - FEELING DRUNK [None]
  - HEART RATE IRREGULAR [None]
  - HYPOAESTHESIA [None]
  - PALPITATIONS [None]
  - SPEECH DISORDER [None]
